FAERS Safety Report 9783823 (Version 2)
Quarter: 2014Q1

REPORT INFORMATION
  Report Type: Spontaneous
  Country: ES (occurrence: GB)
  Receive Date: 20131226
  Receipt Date: 20140204
  Transmission Date: 20141002
  Serious: Yes (Death)
  Sender: FDA-Public Use
  Company Number: GB-FRI-1000052467

PATIENT
  Age: 84 Year
  Sex: Male
  Weight: 89 kg

DRUGS (5)
  1. ACLIDINIUM [Suspect]
     Indication: DYSPNOEA
     Dosage: 2 DOSAGE FORMS
     Route: 055
     Dates: start: 20131028, end: 20131119
  2. ATORVASTATIN [Concomitant]
  3. SPIRONOLACTONE [Concomitant]
     Dosage: 12.5 MG
  4. GANFORT [Concomitant]
     Dosage: 1 DROP
  5. AMIODARONE [Concomitant]

REACTIONS (3)
  - Cardiac arrest [Fatal]
  - Dyspnoea [Not Recovered/Not Resolved]
  - Congestive cardiomyopathy [Fatal]
